FAERS Safety Report 12632769 (Version 2)
Quarter: 2016Q3

REPORT INFORMATION
  Report Type: Spontaneous
  Country: US (occurrence: US)
  Receive Date: 20160808
  Receipt Date: 20160808
  Transmission Date: 20161109
  Serious: No
  Sender: FDA-Public Use
  Company Number: US-BEH-2015056891

PATIENT
  Sex: Female
  Weight: 100 kg

DRUGS (24)
  1. LIDOCAINE/PRILOCAINE [Concomitant]
     Active Substance: LIDOCAINE\PRILOCAINE
  2. HYDROCORTISONE. [Concomitant]
     Active Substance: HYDROCORTISONE
  3. COZAAR [Concomitant]
     Active Substance: LOSARTAN POTASSIUM
  4. NOVOLOG [Concomitant]
     Active Substance: INSULIN ASPART
  5. FISH OIL [Concomitant]
     Active Substance: FISH OIL
  6. HIZENTRA [Suspect]
     Active Substance: HUMAN IMMUNOGLOBULIN G
     Indication: IMMUNODEFICIENCY COMMON VARIABLE
     Route: 058
  7. ACETAMINOPHEN. [Concomitant]
     Active Substance: ACETAMINOPHEN
  8. DIPHENHYDRAMINE. [Concomitant]
     Active Substance: DIPHENHYDRAMINE
  9. ASPIRIN EC [Concomitant]
     Active Substance: ASPIRIN
  10. ZYRTEC [Concomitant]
     Active Substance: CETIRIZINE HYDROCHLORIDE
  11. LANTUS [Concomitant]
     Active Substance: INSULIN GLARGINE
  12. CALCIUM MAGNESIUM+D [Concomitant]
  13. OXYGEN. [Concomitant]
     Active Substance: OXYGEN
  14. ACCOLATE [Concomitant]
     Active Substance: ZAFIRLUKAST
  15. SPIRIVA [Concomitant]
     Active Substance: TIOTROPIUM BROMIDE MONOHYDRATE
  16. HYOSCYAMINE. [Concomitant]
     Active Substance: HYOSCYAMINE
  17. PRILOSEC [Concomitant]
     Active Substance: OMEPRAZOLE MAGNESIUM
  18. FERROUS SULFATE. [Concomitant]
     Active Substance: FERROUS SULFATE
  19. METFORMIN HYDROCHLORIDE. [Concomitant]
     Active Substance: METFORMIN HYDROCHLORIDE
  20. EPINEPHRINE. [Concomitant]
     Active Substance: EPINEPHRINE
  21. SALINE [Concomitant]
     Active Substance: SODIUM CHLORIDE
  22. SPIRONOLACTONE. [Concomitant]
     Active Substance: SPIRONOLACTONE
  23. ADVAIR HFA [Concomitant]
     Active Substance: FLUTICASONE PROPIONATE\SALMETEROL XINAFOATE
  24. LEVOTHYROXINE. [Concomitant]
     Active Substance: LEVOTHYROXINE

REACTIONS (1)
  - Sinusitis [Unknown]
